FAERS Safety Report 9605424 (Version 2)
Quarter: 2013Q4

REPORT INFORMATION
  Report Type: Report from Study
  Country: NL (occurrence: NL)
  Receive Date: 20131008
  Receipt Date: 20131008
  Transmission Date: 20140711
  Serious: Yes (Death, Hospitalization)
  Sender: FDA-Public Use
  Company Number: NL-SA-CLOF-1002705

PATIENT
  Age: 65 Year
  Sex: Male
  Weight: 94 kg

DRUGS (4)
  1. CLOFARABINE [Suspect]
     Indication: ACUTE MYELOID LEUKAEMIA
     Dosage: 20 MG, QD (INDUCTION-L)
     Route: 042
     Dates: start: 20130313, end: 20130317
  2. CLOFARABINE [Suspect]
     Indication: ACUTE MYELOID LEUKAEMIA
     Dosage: 20 MG, QD
     Route: 042
     Dates: start: 20130423, end: 20130427
  3. CYTARABINE [Suspect]
     Indication: ACUTE MYELOID LEUKAEMIA
     Dosage: 2000 MG, QD
     Route: 042
     Dates: start: 20130423, end: 20130428
  4. AMSACRINE [Suspect]
     Indication: ACUTE MYELOID LEUKAEMIA
     Dosage: 240 MG, QD
     Route: 042
     Dates: start: 20130426, end: 20130428

REACTIONS (2)
  - Weight decreased [Not Recovered/Not Resolved]
  - Acute myeloid leukaemia recurrent [Fatal]
